FAERS Safety Report 5162257-1 (Version None)
Quarter: 2006Q4

REPORT INFORMATION
  Report Type: 
  Country: None (occurrence: None)
  Receive Date: 20061121
  Receipt Date: 20061110
  Transmission Date: 20070319
  Serious: Yes (Other)
  Sender: FDA-Public Use
  Company Number: 060197

PATIENT
  Age: 62 Year
  Sex: Female
  Weight: 104.3273 kg

DRUGS (5)
  1. HALFLYTELY [Suspect]
     Indication: COLONOSCOPY
     Dosage: 20 MG/2 L, 1X, PO
     Route: 048
     Dates: start: 20061108
  2. PAXIL [Concomitant]
  3. LOVASTATIN [Concomitant]
  4. DETROL [Concomitant]
  5. CLARITIN [Concomitant]

REACTIONS (4)
  - COLITIS ISCHAEMIC [None]
  - DIVERTICULUM [None]
  - HAEMORRHOIDS [None]
  - RECTAL HAEMORRHAGE [None]
